FAERS Safety Report 10028987 (Version 2)
Quarter: 2014Q2

REPORT INFORMATION
  Report Type: Spontaneous
  Country: JP (occurrence: JP)
  Receive Date: 20140321
  Receipt Date: 20140609
  Transmission Date: 20141212
  Serious: Yes (Hospitalization)
  Sender: FDA-Public Use
  Company Number: PHHY2014JP033869

PATIENT
  Age: 48 Year
  Sex: Male
  Weight: 55.6 kg

DRUGS (2)
  1. WARFARIN [Suspect]
  2. ACETYLSALICYLIC ACID [Suspect]

REACTIONS (14)
  - Anorectal discomfort [Unknown]
  - Constipation [Recovered/Resolved]
  - Bladder discomfort [Unknown]
  - Dysuria [Recovered/Resolved]
  - Spinal cord haemorrhage [Recovered/Resolved]
  - Pain in extremity [Recovered/Resolved]
  - Dysaesthesia [Recovered/Resolved]
  - Paraplegia [Recovered/Resolved]
  - Neck pain [Recovered/Resolved]
  - Back pain [Unknown]
  - Sensory disturbance [Recovered/Resolved]
  - Spinal cord oedema [Recovered/Resolved]
  - Hypoaesthesia [Recovered/Resolved]
  - Asthenia [Recovered/Resolved]
